FAERS Safety Report 25321802 (Version 1)
Quarter: 2025Q2

REPORT INFORMATION
  Report Type: Spontaneous
  Country: RU (occurrence: RU)
  Receive Date: 20250516
  Receipt Date: 20250516
  Transmission Date: 20250717
  Serious: Yes (Life-Threatening)
  Sender: SANDOZ
  Company Number: None

PATIENT
  Sex: Female
  Weight: 59 kg

DRUGS (3)
  1. ERELZI [Suspect]
     Active Substance: ETANERCEPT-SZZS
     Indication: Juvenile idiopathic arthritis
     Dosage: 0.8 MG/KG=47.2 MG ONCE A WEEK
     Route: 058
     Dates: start: 20250429, end: 20250506
  2. METHOTREXATE [Suspect]
     Active Substance: METHOTREXATE
     Indication: Product used for unknown indication
     Route: 065
  3. ARAVA [Concomitant]
     Active Substance: LEFLUNOMIDE
     Indication: Juvenile idiopathic arthritis
     Dosage: 20 MG, QD; PER OS
     Route: 065
     Dates: start: 20241213

REACTIONS (8)
  - Injection site pain [Recovering/Resolving]
  - Pain [Recovering/Resolving]
  - Nausea [Recovering/Resolving]
  - Abdominal pain [Recovering/Resolving]
  - Syncope [Recovering/Resolving]
  - Tongue ulceration [Unknown]
  - Drug hypersensitivity [Unknown]
  - Nausea [Unknown]

NARRATIVE: CASE EVENT DATE: 20250429
